FAERS Safety Report 6114164-5 (Version None)
Quarter: 2009Q1

REPORT INFORMATION
  Report Type: 
  Country: None (occurrence: None)
  Receive Date: 20090312
  Receipt Date: 20080424
  Transmission Date: 20090719
  Serious: No
  Sender: FDA-Public Use
  Company Number: US-ABBOTT-08P-163-0449009-00

PATIENT
  Sex: Male

DRUGS (2)
  1. DEPAKOTE [Suspect]
     Indication: ABNORMAL BEHAVIOUR
     Dosage: 500MG IN MORNING AND 1000MG IN EVENING
     Route: 048
  2. QUETIAPINE FUMARATE [Concomitant]
     Indication: ABNORMAL BEHAVIOUR
     Route: 048

REACTIONS (1)
  - PLATELET COUNT DECREASED [None]
